FAERS Safety Report 8334703-3 (Version None)
Quarter: 2012Q2

REPORT INFORMATION
  Report Type: 
  Country: None (occurrence: None)
  Receive Date: 20120503
  Receipt Date: 20120425
  Transmission Date: 20120825
  Serious: Yes (Other)
  Sender: FDA-Public Use
  Company Number: US-ROCHE-792818

PATIENT
  Sex: Female
  Weight: 56.296 kg

DRUGS (2)
  1. ACCUTANE [Suspect]
     Route: 065
     Dates: start: 19960101, end: 19980101
  2. ACCUTANE [Suspect]
     Indication: ACNE
     Route: 065
     Dates: start: 19860101, end: 19881231

REACTIONS (7)
  - BLADDER DISORDER [None]
  - GALLBLADDER DISORDER [None]
  - ENDOMETRIOSIS [None]
  - INFLAMMATORY BOWEL DISEASE [None]
  - BACK PAIN [None]
  - COLITIS ULCERATIVE [None]
  - DEPRESSION [None]
